FAERS Safety Report 5637849-3 (Version None)
Quarter: 2008Q1

REPORT INFORMATION
  Report Type: 
  Country: None (occurrence: None)
  Receive Date: 20080226
  Receipt Date: 20080219
  Transmission Date: 20080703
  Serious: Yes (Death)
  Sender: FDA-Public Use
  Company Number: SE-DENTSPLY-2008-0018-EUR

PATIENT
  Sex: Male

DRUGS (5)
  1. CARBOCAIN [Suspect]
     Dates: start: 20071031, end: 20071031
  2. ENALAPRIL MALEATE [Suspect]
     Dates: start: 20070919, end: 20071031
  3. LANACRIST [Concomitant]
  4. SELOKEN [Concomitant]
  5. ASPIRIN [Concomitant]

REACTIONS (7)
  - ANOXIC ENCEPHALOPATHY [None]
  - CARDIAC FAILURE [None]
  - FALL [None]
  - LARYNGEAL OEDEMA [None]
  - LOSS OF CONSCIOUSNESS [None]
  - SWOLLEN TONGUE [None]
  - SYNCOPE [None]
